FAERS Safety Report 14672202 (Version 1)
Quarter: 2018Q1

REPORT INFORMATION
  Report Type: Spontaneous
  Country: JP (occurrence: JP)
  Receive Date: 20180323
  Receipt Date: 20180323
  Transmission Date: 20180509
  Serious: Yes (Other)
  Sender: FDA-Public Use
  Company Number: JP-ALEMBIC PHARMACUETICALS LIMITED-2018SCAL000209

PATIENT

DRUGS (3)
  1. ROPINIROLE HYDROCHLORIDE. [Suspect]
     Active Substance: ROPINIROLE HYDROCHLORIDE
     Indication: PARKINSON^S DISEASE
     Dosage: 12 MG, QD
     Route: 065
  2. SELEGILINE [Suspect]
     Active Substance: SELEGILINE
     Indication: PARKINSON^S DISEASE
     Dosage: 7.5 MG, QD
     Route: 065
  3. LEVODOPA [Suspect]
     Active Substance: LEVODOPA
     Indication: PARKINSON^S DISEASE
     Dosage: 200 MG, QD
     Route: 065

REACTIONS (4)
  - Abdominal pain [Recovering/Resolving]
  - Camptocormia [Recovering/Resolving]
  - Pleurothotonus [Recovering/Resolving]
  - Posture abnormal [Recovering/Resolving]
